FAERS Safety Report 11319934 (Version 1)
Quarter: 2015Q3

REPORT INFORMATION
  Report Type: Spontaneous
  Country: US (occurrence: None)
  Receive Date: 20150728
  Receipt Date: 20150728
  Transmission Date: 20151125
  Serious: Yes (Hospitalization)
  Sender: FDA-Public Use
  Company Number: None

PATIENT
  Age: 70 Year
  Sex: Male

DRUGS (1)
  1. GANCICLOVIR. [Suspect]
     Active Substance: GANCICLOVIR
     Indication: INFECTION
     Route: 042
     Dates: start: 20150511, end: 20150618

REACTIONS (2)
  - Drug hypersensitivity [None]
  - Pyrexia [None]

NARRATIVE: CASE EVENT DATE: 20150518
